FAERS Safety Report 6524088-7 (Version None)
Quarter: 2009Q4

REPORT INFORMATION
  Report Type: 
  Country: None (occurrence: None)
  Receive Date: 20091230
  Receipt Date: 20091230
  Transmission Date: 20100525
  Serious: Yes (Death)
  Sender: FDA-Public Use
  Company Number: None

PATIENT
  Sex: Male
  Weight: 63.5036 kg

DRUGS (2)
  1. SEROQUEL [Suspect]
     Indication: SCHIZOPHRENIA
     Dosage: 300 MG 3 TIMES A DAY
     Dates: start: 20050401
  2. SEROQUEL [Suspect]
     Indication: SCHIZOPHRENIA
     Dosage: 300 MG 3 TIMES A DAY
     Dates: start: 20080501

REACTIONS (4)
  - ALCOHOL USE [None]
  - COMPLETED SUICIDE [None]
  - MALAISE [None]
  - OVERDOSE [None]
